FAERS Safety Report 9529427 (Version 4)
Quarter: 2013Q3

REPORT INFORMATION
  Report Type: Spontaneous
  Country: US (occurrence: US)
  Receive Date: 20130917
  Receipt Date: 20130927
  Transmission Date: 20140515
  Serious: Yes (Hospitalization, Congenital Anomaly, Other)
  Sender: FDA-Public Use
  Company Number: US-PFIZER INC-2013265698

PATIENT
  Sex: Female

DRUGS (33)
  1. IBUPROFEN [Suspect]
     Indication: PAIN
     Dosage: 800 MG, 3X/DAY
     Route: 064
     Dates: start: 20090305
  2. LISINOPRIL [Suspect]
     Indication: HYPERTENSION
     Dosage: 10 MG, 1X/DAY
     Route: 064
     Dates: start: 20080718
  3. LISINOPRIL [Suspect]
     Dosage: 10 MG, 1X/DAY
     Route: 064
     Dates: start: 20080815
  4. LISINOPRIL [Suspect]
     Dosage: 10 MG, 1X/DAY
     Route: 064
     Dates: start: 20081204
  5. LISINOPRIL [Suspect]
     Dosage: 10 MG, 1X/DAY
     Route: 064
     Dates: start: 20081229
  6. LISINOPRIL [Suspect]
     Dosage: 10 MG, 1X/DAY
     Route: 064
     Dates: start: 20090128
  7. LISINOPRIL [Suspect]
     Dosage: 10 MG, 1X/DAY
     Route: 064
     Dates: start: 20090304
  8. FLUOXETINE HCL [Suspect]
     Indication: ANXIETY
     Dosage: 40 MG, 2X/DAY
     Route: 064
     Dates: start: 20080729
  9. FLUOXETINE HCL [Suspect]
     Indication: DEPRESSION
     Dosage: 40 MG, 2X/DAY
     Route: 064
     Dates: start: 20081230
  10. FLUOXETINE HCL [Suspect]
     Dosage: 40 MG, 2X/DAY
     Route: 064
     Dates: start: 20090224
  11. METFORMIN HCL [Suspect]
     Indication: DIABETES MELLITUS
     Dosage: 2000 MG, 1X/DAY
     Route: 064
     Dates: start: 20080513
  12. METFORMIN HCL [Suspect]
     Dosage: 2000 MG, 1X/DAY
     Route: 064
     Dates: start: 20080629
  13. METFORMIN HCL [Suspect]
     Dosage: 2000 MG, 1X/DAY
     Route: 064
     Dates: start: 20080729
  14. METFORMIN HCL [Suspect]
     Dosage: 2000 MG, 1X/DAY
     Route: 064
     Dates: start: 20080901
  15. METFORMIN HCL [Suspect]
     Dosage: 2000 MG, 1X/DAY
     Route: 064
     Dates: start: 20090224
  16. PRAVASTATIN SODIUM [Suspect]
     Indication: BLOOD CHOLESTEROL INCREASED
     Dosage: 20 MG, 1X/DAY
     Route: 064
     Dates: start: 20081027
  17. PRAVASTATIN SODIUM [Suspect]
     Dosage: 20 MG, 1X/DAY
     Route: 064
     Dates: start: 20081123
  18. PRAVASTATIN SODIUM [Suspect]
     Dosage: 20 MG, 1X/DAY
     Route: 064
     Dates: start: 20081223
  19. PRAVASTATIN SODIUM [Suspect]
     Dosage: 20 MG, 1X/DAY
     Route: 064
     Dates: start: 20090223
  20. PRAVASTATIN SODIUM [Suspect]
     Dosage: 20 MG, 1X/DAY
     Route: 064
     Dates: start: 20090224
  21. INSULIN [Suspect]
     Indication: DIABETES MELLITUS
     Route: 064
  22. TOPAMAX [Suspect]
     Indication: MIGRAINE
     Dosage: 400 MG, 1X/DAY
     Route: 064
     Dates: start: 200812, end: 200904
  23. TOPAMAX [Suspect]
     Route: 064
  24. WELLBUTRIN [Suspect]
     Indication: ANXIETY
     Dosage: UNK MG, UNK
     Route: 064
     Dates: start: 20090305
  25. PROZAC [Suspect]
     Indication: ANXIETY
     Dosage: 40 MG, 2X/DAY
     Route: 064
     Dates: start: 20080729
  26. PROZAC [Suspect]
     Indication: DEPRESSION
     Dosage: 40 MG, 2X/DAY
     Route: 064
     Dates: start: 20081230
  27. PROZAC [Suspect]
     Dosage: 40 MG, 2X/DAY
     Route: 064
     Dates: start: 20090224
  28. LOPERAMIDE [Suspect]
     Indication: DIARRHOEA
     Dosage: 2 MG, 4X/DAY
     Route: 064
     Dates: start: 20090205
  29. DESIPRAMINE [Suspect]
     Indication: DEPRESSION
     Dosage: 10 MG, 2X/DAY
     Route: 064
     Dates: start: 20090205
  30. BUPROPION [Suspect]
     Indication: DEPRESSION
     Dosage: 75 MG, 4X/DAY
     Route: 064
     Dates: start: 20090305
  31. TRAZODONE [Suspect]
     Indication: DEPRESSION
     Dosage: UNK
     Route: 064
  32. TRAZODONE [Suspect]
     Indication: ANXIETY
  33. PRENATABS RX [Concomitant]
     Indication: VITAMIN SUPPLEMENTATION
     Dosage: 1 DF, 1X/DAY
     Route: 064
     Dates: start: 200812, end: 200909

REACTIONS (7)
  - Maternal exposure during pregnancy [Recovering/Resolving]
  - Patent ductus arteriosus [Recovering/Resolving]
  - Hypoglycaemia [Recovering/Resolving]
  - Ventricular septal defect [Recovered/Resolved]
  - Atrial septal defect [Unknown]
  - Respiratory distress [Recovering/Resolving]
  - Emotional distress [Unknown]
